FAERS Safety Report 7547630-6 (Version None)
Quarter: 2011Q2

REPORT INFORMATION
  Report Type: 
  Country: None (occurrence: None)
  Receive Date: 20110614
  Receipt Date: 20110601
  Transmission Date: 20111010
  Serious: Yes (Hospitalization, Other)
  Sender: FDA-Public Use
  Company Number: US-CELGENEUS-ABX40-07-0386

PATIENT
  Sex: Female

DRUGS (10)
  1. CYCLOPHOSPHAMIDE [Suspect]
     Indication: BREAST CANCER
     Dosage: 600 MILLIGRAM/KILOGRAM
     Route: 051
     Dates: start: 20070131
  2. APREPITANT [Concomitant]
     Route: 065
     Dates: start: 20070131
  3. BEVACIZUMAB [Suspect]
     Indication: BREAST CANCER
     Dosage: 10 MILLIGRAM/SQ. METER
     Route: 051
     Dates: start: 20070131
  4. LANSOPRAZOLE [Concomitant]
     Dosage: UNK
     Route: 065
     Dates: start: 20070131
  5. LORAZEPAM [Concomitant]
     Dosage: UNK
     Route: 065
     Dates: start: 20070131
  6. PEGFILGRASTIM [Concomitant]
     Dosage: 6 MILLIGRAM
     Route: 058
     Dates: start: 20070201
  7. ABRAXANE [Suspect]
     Indication: BREAST CANCER
     Dosage: 260 MILLIGRAM/SQ. METER
     Route: 051
  8. DEXAMETHASONE [Concomitant]
     Route: 065
     Dates: start: 20070131
  9. BUPROPION HYDROCLORIDE [Concomitant]
     Dates: start: 20070131
  10. DOXORUBICIN HCL [Suspect]
     Indication: BREAST CANCER
     Dosage: 60 MILLIGRAM/SQ. METER
     Route: 051
     Dates: start: 20070131

REACTIONS (3)
  - DEHYDRATION [None]
  - HYPOKALAEMIA [None]
  - DECREASED APPETITE [None]
